FAERS Safety Report 13043574 (Version 1)
Quarter: 2016Q4

REPORT INFORMATION
  Report Type: Spontaneous
  Country: US (occurrence: US)
  Receive Date: 20161220
  Receipt Date: 20161220
  Transmission Date: 20170207
  Serious: No
  Sender: FDA-Public Use
  Company Number: US-TEVA-629442USA

PATIENT
  Sex: Female

DRUGS (1)
  1. METRONIDAZOLE. [Suspect]
     Active Substance: METRONIDAZOLE

REACTIONS (36)
  - Syncope [Unknown]
  - Diarrhoea [Unknown]
  - Glossitis [Unknown]
  - Rash erythematous [Unknown]
  - Cystitis [Unknown]
  - Headache [Unknown]
  - Vertigo [Unknown]
  - Nausea [Unknown]
  - Stomatitis [Unknown]
  - Incontinence [Unknown]
  - Irritability [Unknown]
  - Decreased appetite [Unknown]
  - Tongue discolouration [Unknown]
  - Pyrexia [Unknown]
  - Ataxia [Unknown]
  - Confusional state [Unknown]
  - Pruritus [Unknown]
  - Neuropathy peripheral [Unknown]
  - Coordination abnormal [Unknown]
  - Dysarthria [Unknown]
  - Asthenia [Unknown]
  - Dyspepsia [Unknown]
  - Nasal congestion [Unknown]
  - Dysuria [Unknown]
  - Vomiting [Unknown]
  - Flushing [Unknown]
  - Dry mouth [Unknown]
  - Adverse event [Unknown]
  - Depression [Unknown]
  - Constipation [Unknown]
  - Dysgeusia [Unknown]
  - Polyuria [Unknown]
  - Pelvic pain [Unknown]
  - Dizziness [Unknown]
  - Somnolence [Unknown]
  - Abdominal pain [Unknown]
